FAERS Safety Report 7819611-6 (Version None)
Quarter: 2011Q4

REPORT INFORMATION
  Report Type: 
  Country: None (occurrence: None)
  Receive Date: 20111018
  Receipt Date: 20111018
  Transmission Date: 20120403
  Serious: No
  Sender: FDA-Public Use
  Company Number: None

PATIENT
  Age: 40 Year
  Sex: Female
  Weight: 121 kg

DRUGS (10)
  1. LORAZEPAM [Concomitant]
     Route: 048
  2. EMEND [Suspect]
     Indication: CHEMOTHERAPY
     Dosage: 150MG
     Route: 041
     Dates: start: 20110819, end: 20110819
  3. MANNITOL [Concomitant]
     Route: 042
  4. ONDANSETRON [Concomitant]
     Route: 048
  5. DEXAMETHASONE [Concomitant]
     Route: 048
  6. MAGNESIUM SULFATE [Concomitant]
     Route: 042
  7. PROCHLORPERAZINE [Concomitant]
  8. IMODIUM MULTI-SYMPTOM RELIEF [Concomitant]
     Route: 048
  9. CISPLATIN [Concomitant]
     Route: 042
  10. -0.9NS + 20MEQ KCL/LITER [Concomitant]
     Route: 042

REACTIONS (1)
  - INFUSION SITE PAIN [None]
